FAERS Safety Report 4687186-9 (Version None)
Quarter: 2005Q2

REPORT INFORMATION
  Report Type: 
  Country: None (occurrence: None)
  Receive Date: 20050606
  Receipt Date: 20050524
  Transmission Date: 20051028
  Serious: Yes (Hospitalization, Other)
  Sender: FDA-Public Use
  Company Number: 2005079623

PATIENT
  Sex: Male
  Weight: 95.2554 kg

DRUGS (4)
  1. CELEBREX [Suspect]
     Indication: ARTHRITIS
     Dosage: DAILY INTERVAL: EVERY DAY
  2. FUROSEMIDE [Concomitant]
  3. PRAVACHOL [Concomitant]
  4. COUMADIN [Concomitant]

REACTIONS (6)
  - ABNORMAL FAECES [None]
  - AORTIC VALVE REPLACEMENT [None]
  - ARTHROPATHY [None]
  - COLON CANCER [None]
  - FAECES DISCOLOURED [None]
  - ULCER HAEMORRHAGE [None]
